FAERS Safety Report 10450575 (Version 1)
Quarter: 2014Q3

REPORT INFORMATION
  Report Type: Spontaneous
  Country: DE (occurrence: DE)
  Receive Date: 20140912
  Receipt Date: 20140912
  Transmission Date: 20150326
  Serious: Yes (Hospitalization)
  Sender: FDA-Public Use
  Company Number: PHHY2014DE111510

PATIENT
  Age: 84 Year
  Sex: Female

DRUGS (2)
  1. ENOXAPARIN [Suspect]
     Active Substance: ENOXAPARIN
     Indication: ANTICOAGULANT THERAPY
     Route: 058
  2. ACETYLSALICYLIC ACID [Concomitant]
     Active Substance: ASPIRIN
     Indication: ANTICOAGULANT THERAPY

REACTIONS (7)
  - Skin lesion [Recovering/Resolving]
  - Haematoma [Unknown]
  - Angiokeratoma [Recovered/Resolved]
  - Renal failure acute [Recovering/Resolving]
  - Rash [Unknown]
  - Skin haemorrhage [Unknown]
  - Papule [Unknown]
